FAERS Safety Report 21401440 (Version 1)
Quarter: 2022Q4

REPORT INFORMATION
  Report Type: Spontaneous
  Country: IN (occurrence: IN)
  Receive Date: 20221003
  Receipt Date: 20221003
  Transmission Date: 20230113
  Serious: Yes (Other)
  Sender: FDA-Public Use
  Company Number: IN-NATCOUSA-2022-NATCOUSA-000081

PATIENT
  Age: 60 Year
  Sex: Male

DRUGS (1)
  1. IMATINIB MESYLATE [Suspect]
     Active Substance: IMATINIB MESYLATE
     Indication: Gastrointestinal stromal tumour

REACTIONS (4)
  - Metastases to lymph nodes [Unknown]
  - Metastases to bone [Unknown]
  - Gastrointestinal stromal tumour [Unknown]
  - Disease progression [Unknown]
